FAERS Safety Report 23983552 (Version 1)
Quarter: 2024Q2

REPORT INFORMATION
  Report Type: Spontaneous
  Country: US (occurrence: US)
  Receive Date: 20240617
  Receipt Date: 20240617
  Transmission Date: 20240716
  Serious: Yes (Death, Other)
  Sender: FDA-Public Use
  Company Number: US-BRISTOL-MYERS SQUIBB COMPANY-2024-093978

PATIENT
  Age: 69 Year
  Sex: Female
  Weight: 86 kg

DRUGS (11)
  1. POMALYST [Suspect]
     Active Substance: POMALIDOMIDE
     Indication: Plasma cell myeloma
     Dosage: FREQUENCY: 1 DAILY FOR 21DAYS, OFF FOR 7DAYS
     Route: 048
     Dates: start: 20211108
  2. CLINDAMYCIN [Concomitant]
     Active Substance: CLINDAMYCIN
  3. ELIQUIS [Concomitant]
     Active Substance: APIXABAN
  4. BUPRENORPHINE [Concomitant]
     Active Substance: BUPRENORPHINE
  5. FAMOTIDINE [Concomitant]
     Active Substance: FAMOTIDINE
  6. FUROSEMIDE [Concomitant]
     Active Substance: FUROSEMIDE
  7. GABAPENTIN [Concomitant]
     Active Substance: GABAPENTIN
  8. KLOR-CON M10 [Concomitant]
     Active Substance: POTASSIUM CHLORIDE
     Dosage: ER
  9. METOPROLOL SUCCINATE [Concomitant]
     Active Substance: METOPROLOL SUCCINATE
  10. MYRBETRIQ [Concomitant]
     Active Substance: MIRABEGRON
  11. SERTRALINE [Concomitant]
     Active Substance: SERTRALINE HYDROCHLORIDE

REACTIONS (2)
  - Craniocerebral injury [Fatal]
  - Fall [Unknown]

NARRATIVE: CASE EVENT DATE: 20240606
